FAERS Safety Report 9220363 (Version 4)
Quarter: 2013Q3

REPORT INFORMATION
  Report Type: Spontaneous
  Country: US (occurrence: US)
  Receive Date: 20130409
  Receipt Date: 20130927
  Transmission Date: 20140515
  Serious: Yes (Other)
  Sender: FDA-Public Use
  Company Number: US-PFIZER INC-2013108107

PATIENT
  Age: 83 Year
  Sex: Male
  Weight: 58.96 kg

DRUGS (7)
  1. CHANTIX [Suspect]
     Indication: SMOKING CESSATION THERAPY
     Dosage: 0.5 MG, 1X/DAY
     Route: 048
     Dates: start: 201205, end: 201206
  2. ADVIL PM [Suspect]
     Indication: INSOMNIA
     Dosage: UNK
  3. AMBIEN [Suspect]
     Indication: INSOMNIA
     Dosage: UNK
  4. FLOVENT [Concomitant]
     Indication: CHRONIC OBSTRUCTIVE PULMONARY DISEASE
     Dosage: UNK
  5. ALPHAGAN [Concomitant]
     Indication: GLAUCOMA
     Dosage: UNK
  6. TRAVATAN [Concomitant]
     Indication: GLAUCOMA
     Dosage: UNK
  7. SPIRIVA [Concomitant]
     Indication: CHRONIC OBSTRUCTIVE PULMONARY DISEASE
     Dosage: UNK

REACTIONS (11)
  - Kidney infection [Unknown]
  - Psychotic disorder [Not Recovered/Not Resolved]
  - Mental disorder [Not Recovered/Not Resolved]
  - Abnormal behaviour [Unknown]
  - Feeling abnormal [Unknown]
  - Memory impairment [Unknown]
  - Confusional state [Unknown]
  - Restlessness [Unknown]
  - Insomnia [Unknown]
  - Dementia Alzheimer^s type [Not Recovered/Not Resolved]
  - Eczema [Not Recovered/Not Resolved]
